FAERS Safety Report 16977680 (Version 5)
Quarter: 2020Q1

REPORT INFORMATION
  Report Type: Spontaneous
  Country: US (occurrence: US)
  Receive Date: 20191031
  Receipt Date: 20200120
  Transmission Date: 20200409
  Serious: No
  Sender: FDA-Public Use
  Company Number: US-BIOGEN-2019BI00793024

PATIENT
  Age: 59 Year
  Sex: Female

DRUGS (6)
  1. TECFIDERA [Suspect]
     Active Substance: DIMETHYL FUMARATE
     Indication: MULTIPLE SCLEROSIS
     Dosage: TOOK FOR 7 DAYS
     Route: 048
     Dates: start: 20190927, end: 20191003
  2. MECLIZINE [Concomitant]
     Active Substance: MECLIZINE HYDROCHLORIDE
     Route: 065
  3. TECFIDERA [Suspect]
     Active Substance: DIMETHYL FUMARATE
     Route: 048
     Dates: start: 20191004, end: 20191013
  4. TECFIDERA [Suspect]
     Active Substance: DIMETHYL FUMARATE
     Dosage: MAINTENANCE DOSE
     Route: 048
     Dates: start: 20190925
  5. TECFIDERA [Suspect]
     Active Substance: DIMETHYL FUMARATE
     Dosage: STARTED ON DAY 8
     Route: 048
     Dates: end: 20191013
  6. TECFIDERA [Suspect]
     Active Substance: DIMETHYL FUMARATE
     Route: 065
     Dates: end: 20200107

REACTIONS (20)
  - Mobility decreased [Unknown]
  - Abdominal distension [Recovered/Resolved]
  - Gastrooesophageal reflux disease [Unknown]
  - Pruritus [Recovered/Resolved]
  - Malaise [Unknown]
  - Flushing [Recovered/Resolved]
  - Rash papular [Recovered/Resolved]
  - Vomiting [Unknown]
  - Asthenia [Recovered/Resolved]
  - Gastroenteritis viral [Unknown]
  - Musculoskeletal chest pain [Not Recovered/Not Resolved]
  - Viral infection [Recovered/Resolved]
  - Abdominal discomfort [Recovered/Resolved with Sequelae]
  - Dyspepsia [Unknown]
  - Dyspnoea [Recovered/Resolved]
  - Feeding disorder [Recovered/Resolved]
  - Gastric disorder [Not Recovered/Not Resolved]
  - Nausea [Not Recovered/Not Resolved]
  - Diarrhoea [Unknown]
  - Gastrointestinal disorder [Not Recovered/Not Resolved]

NARRATIVE: CASE EVENT DATE: 20190927
